FAERS Safety Report 11693369 (Version 1)
Quarter: 2016Q4

REPORT INFORMATION
  Report Type: Spontaneous
  Country: US (occurrence: None)
  Receive Date: 20151102
  Receipt Date: 20151102
  Transmission Date: 20170206
  Serious: No
  Sender: FDA-Public Use
  Company Number: None

PATIENT
  Age: 12 Month
  Sex: Male
  Weight: 9.98 kg

DRUGS (1)
  1. AMOXICILLIN. [Suspect]
     Active Substance: AMOXICILLIN
     Indication: EAR INFECTION
     Dosage: 5ML, TWICE DAILY, TAKEN BY MOUTH
     Route: 048
     Dates: start: 20150923, end: 20150930

REACTIONS (1)
  - Urticaria [None]

NARRATIVE: CASE EVENT DATE: 20150930
